FAERS Safety Report 4859856-0 (Version None)
Quarter: 2005Q4

REPORT INFORMATION
  Report Type: 
  Country: None (occurrence: None)
  Receive Date: 20051215
  Receipt Date: 20051130
  Transmission Date: 20060501
  Serious: Yes (Death)
  Sender: FDA-Public Use
  Company Number: 2005S1011511

PATIENT
  Age: 65 Year
  Sex: Female

DRUGS (4)
  1. CLOZAPINE [Suspect]
     Indication: BIPOLAR DISORDER
     Dosage: 100 MG; TID; ORAL
     Route: 048
     Dates: start: 20010104, end: 20051106
  2. LITHIUM [Concomitant]
  3. MORPHINE [Concomitant]
  4. FENTANYL [Concomitant]

REACTIONS (1)
  - NEOPLASM MALIGNANT [None]
